FAERS Safety Report 12360271 (Version 3)
Quarter: 2016Q2

REPORT INFORMATION
  Report Type: Spontaneous
  Country: US (occurrence: US)
  Receive Date: 20160512
  Receipt Date: 20160630
  Transmission Date: 20160815
  Serious: No
  Sender: FDA-Public Use
  Company Number: US-PFIZER INC-2016231805

PATIENT
  Age: 39 Year
  Sex: Female

DRUGS (5)
  1. TOPAMAX [Suspect]
     Active Substance: TOPIRAMATE
     Indication: CSF TEST ABNORMAL
     Dosage: 50 MG, 2X/DAY
     Route: 048
     Dates: start: 20160311
  2. NEURONTIN [Suspect]
     Active Substance: GABAPENTIN
     Dosage: 1200 MG, 3X/DAY
     Route: 048
     Dates: start: 20160125
  3. TOPAMAX [Suspect]
     Active Substance: TOPIRAMATE
     Indication: HEADACHE
     Dosage: 50 MG, 2X/DAY
     Route: 048
     Dates: start: 2013, end: 201601
  4. NEURONTIN [Suspect]
     Active Substance: GABAPENTIN
     Indication: NEURALGIA
     Dosage: 2400 MG, DAILY (ONE 600 MG TABLET IN THE MORNING, ONE AT LUNCH, TWO AT NIGHT)
     Route: 048
  5. NEURONTIN [Suspect]
     Active Substance: GABAPENTIN
     Indication: RADICULAR PAIN
     Dosage: 100 MG, 1X/DAY (AT NIGHT)

REACTIONS (4)
  - Vision blurred [Unknown]
  - Headache [Unknown]
  - Influenza [Recovering/Resolving]
  - Drug ineffective for unapproved indication [Not Recovered/Not Resolved]
